FAERS Safety Report 6276460-0 (Version None)
Quarter: 2009Q3

REPORT INFORMATION
  Report Type: 
  Country: None (occurrence: None)
  Receive Date: 20090720
  Receipt Date: 20080621
  Transmission Date: 20100115
  Serious: Yes (Death)
  Sender: FDA-Public Use
  Company Number: USA-2008-0033626

PATIENT
  Age: 30 Year

DRUGS (5)
  1. MORPHINE SULFATE [Suspect]
     Indication: DRUG ABUSE
     Dosage: ORAL
     Route: 048
  2. HYDROCODONE BITARTRATE [Suspect]
     Indication: DRUG ABUSE
     Dosage: ORAL
     Route: 048
  3. METHADONE HCL [Suspect]
     Indication: DRUG ABUSE
     Dosage: ORAL
     Route: 048
  4. COCAINE (COCAINE) [Suspect]
     Indication: DRUG ABUSE
  5. FENTANYL-100 [Suspect]
     Indication: DRUG ABUSE

REACTIONS (2)
  - MULTIPLE DRUG OVERDOSE [None]
  - SUBSTANCE ABUSE [None]
